FAERS Safety Report 9650801 (Version 1)
Quarter: 2013Q4

REPORT INFORMATION
  Report Type: Other
  Country: GB (occurrence: GB)
  Receive Date: 20131029
  Receipt Date: 20131029
  Transmission Date: 20140711
  Serious: Yes (Other)
  Sender: FDA-Public Use
  Company Number: GB-PERRIGO-13GB010921

PATIENT
  Sex: 0

DRUGS (2)
  1. RANITIDINE HYDROCHLORIDE 16028/0122 83.75 MG [Suspect]
     Indication: PROPHYLAXIS
     Dosage: 150 MG, BID
     Route: 048
     Dates: start: 20131001, end: 20131010
  2. DICLOFENAC [Suspect]
     Indication: PAIN IN EXTREMITY
     Dosage: 50 MG, TID
     Route: 048
     Dates: start: 20131001, end: 20131010

REACTIONS (4)
  - Angioedema [Not Recovered/Not Resolved]
  - Rash erythematous [Not Recovered/Not Resolved]
  - Rash pruritic [Not Recovered/Not Resolved]
  - Lip swelling [Unknown]
